FAERS Safety Report 8152662-3 (Version None)
Quarter: 2012Q1

REPORT INFORMATION
  Report Type: 
  Country: None (occurrence: None)
  Receive Date: 20120221
  Receipt Date: 20120213
  Transmission Date: 20120608
  Serious: Yes (Hospitalization)
  Sender: FDA-Public Use
  Company Number: PHHY2012GB005284

PATIENT
  Age: 46 Year
  Sex: Female
  Weight: 53 kg

DRUGS (2)
  1. METHOTREXATE [Suspect]
     Indication: CROHN'S DISEASE
     Dosage: 15 MG, UNK
     Route: 048
     Dates: start: 20081202
  2. INFLIXIMAB [Suspect]
     Indication: CROHN'S DISEASE
     Dosage: 560 MG, UNK
     Route: 042
     Dates: start: 20100120, end: 20111022

REACTIONS (1)
  - CEREBROVASCULAR ACCIDENT [None]
